FAERS Safety Report 5707824-9 (Version None)
Quarter: 2008Q2

REPORT INFORMATION
  Report Type: 
  Country: None (occurrence: None)
  Receive Date: 20080417
  Receipt Date: 20080411
  Transmission Date: 20081010
  Serious: Yes (Life-Threatening, Hospitalization, Other)
  Sender: FDA-Public Use
  Company Number: DE-BAYER-200810518GPV

PATIENT
  Age: 85 Year
  Sex: Male
  Weight: 75 kg

DRUGS (4)
  1. MAGNEVIST [Suspect]
     Indication: ANGIOGRAM
     Route: 042
     Dates: start: 20071114, end: 20071114
  2. MAGNEVIST [Suspect]
     Route: 042
     Dates: start: 20071115, end: 20071115
  3. MAGNEVIST [Suspect]
     Route: 042
     Dates: start: 20071121, end: 20071121
  4. ERYTHROPOETIN [Concomitant]
     Indication: NORMOCHROMIC NORMOCYTIC ANAEMIA
     Route: 065
     Dates: start: 20071201

REACTIONS (4)
  - BLOOD CREATININE INCREASED [None]
  - CARDIAC FAILURE [None]
  - DIARRHOEA [None]
  - RENAL FAILURE [None]
